FAERS Safety Report 8397153-X (Version None)
Quarter: 2012Q2

REPORT INFORMATION
  Report Type: 
  Country: None (occurrence: None)
  Receive Date: 20120530
  Receipt Date: 20120521
  Transmission Date: 20120825
  Serious: Yes (Hospitalization, Other)
  Sender: FDA-Public Use
  Company Number: US-BAXTER-2012BAX006841

PATIENT
  Age: 54 Year
  Sex: Male

DRUGS (7)
  1. MESNA [Concomitant]
     Indication: PROPHYLAXIS
  2. DEXRAZOXANE HYDROCHLORIDE [Concomitant]
     Indication: PROPHYLAXIS
  3. IFOSFAMIDE [Suspect]
     Dosage: THE 3RD AND 4TH CYCLE GIVEN AT 10% REDUCED DOSE
     Route: 042
  4. PEGFILGRASTIM [Concomitant]
     Indication: NEUTROPENIA
  5. IFOSFAMIDE [Suspect]
     Indication: SARCOMA
     Dosage: 2.5 G/M2 (5.5G)
     Route: 042
  6. DOXORUBICIN HCL [Concomitant]
     Indication: SARCOMA
     Dosage: (55MG)
  7. DOXORUBICIN HCL [Concomitant]
     Dosage: 3RD AND 4TH CYCLES GIVEN AT 105 REDUCED DOSE

REACTIONS (3)
  - FANCONI SYNDROME [None]
  - NEPHROGENIC DIABETES INSIPIDUS [None]
  - FEBRILE NEUTROPENIA [None]
